FAERS Safety Report 9818110 (Version 1)
Quarter: 2013Q4

REPORT INFORMATION
  Report Type: Spontaneous
  Country: US (occurrence: None)
  Receive Date: 20131224
  Receipt Date: 20131224
  Transmission Date: 20140711
  Serious: No
  Sender: FDA-Public Use
  Company Number: PHEH2013US023034

PATIENT
  Sex: Female

DRUGS (5)
  1. GILENYA [Suspect]
     Indication: MULTIPLE SCLEROSIS
     Route: 048
  2. ZOCOR(SIMVASTATIN) [Concomitant]
  3. GABAPENTIN(GABAPENTIN) [Concomitant]
  4. ZOLOFT(SERTRALINE HYDROCHLORIDE) [Concomitant]
  5. NORPACE(DISOPYRAMIDE PHOSPHATE) [Concomitant]

REACTIONS (4)
  - Blood creatinine increased [None]
  - Haematocrit decreased [None]
  - Alanine aminotransferase increased [None]
  - White blood cell count decreased [None]
